FAERS Safety Report 12966397 (Version 1)
Quarter: 2016Q4

REPORT INFORMATION
  Report Type: Spontaneous
  Country: JP (occurrence: JP)
  Receive Date: 20161122
  Receipt Date: 20161122
  Transmission Date: 20170207
  Serious: Yes (Other)
  Sender: FDA-Public Use
  Company Number: JP-009507513-1610JPN013321

PATIENT
  Age: 8 Decade

DRUGS (1)
  1. CUBICIN [Suspect]
     Active Substance: DAPTOMYCIN
     Indication: MEDIASTINITIS
     Dosage: 4 MG/KG, QOD
     Route: 041
     Dates: start: 201610, end: 201610

REACTIONS (2)
  - Blood creatinine increased [Unknown]
  - Pneumonia [Unknown]

NARRATIVE: CASE EVENT DATE: 201610
